FAERS Safety Report 9220806 (Version 2)
Quarter: 2013Q2

REPORT INFORMATION
  Report Type: Spontaneous
  Country: JP (occurrence: JP)
  Receive Date: 20130409
  Receipt Date: 20130416
  Transmission Date: 20140414
  Serious: Yes (Other)
  Sender: FDA-Public Use
  Company Number: JP-PFIZER INC-2013098648

PATIENT
  Age: 64 Year
  Sex: Male

DRUGS (3)
  1. METHYLPREDNISOLONE [Suspect]
     Dosage: 500 MG, DAILY FOR 3 DAYS
  2. PHENYTOIN [Suspect]
     Indication: HEAD INJURY
     Dosage: 200 MG, DAILY
  3. BETAMETHASONE [Suspect]
     Dosage: 8 MG, DAILY

REACTIONS (2)
  - Drug reaction with eosinophilia and systemic symptoms [Unknown]
  - Cytomegalovirus infection [Unknown]
